FAERS Safety Report 8591566-9 (Version None)
Quarter: 2012Q3

REPORT INFORMATION
  Report Type: 
  Country: None (occurrence: None)
  Receive Date: 20120814
  Receipt Date: 20120810
  Transmission Date: 20120928
  Serious: No
  Sender: FDA-Public Use
  Company Number: US-PFIZER INC-2012196005

PATIENT
  Age: 60 Year
  Sex: Male
  Weight: 105 kg

DRUGS (3)
  1. XALKORI [Suspect]
     Indication: LUNG CARCINOMA CELL TYPE UNSPECIFIED STAGE III
     Dosage: 250 MG, 2X/DAY
     Dates: start: 20120101
  2. LANTUS SOLOSTAR [Concomitant]
     Indication: DIABETES MELLITUS
     Dosage: UNK, DAILY
  3. HUMALOG [Concomitant]
     Indication: DIABETES MELLITUS
     Dosage: UNK

REACTIONS (1)
  - DIARRHOEA [None]
